FAERS Safety Report 4323512-8 (Version None)
Quarter: 2004Q1

REPORT INFORMATION
  Report Type: 
  Country: None (occurrence: None)
  Receive Date: 20040323
  Receipt Date: 20031230
  Transmission Date: 20041129
  Serious: No
  Sender: FDA-Public Use
  Company Number: US_040199635

PATIENT
  Age: 50 Year
  Sex: Male
  Weight: 91 kg

DRUGS (2)
  1. CIALIS [Suspect]
     Dosage: 20 MG/IN THE EVENING
     Dates: start: 20031225
  2. TENORMIN [Concomitant]

REACTIONS (8)
  - DRUG INEFFECTIVE [None]
  - DYSPEPSIA [None]
  - DYSPNOEA [None]
  - FLUSHING [None]
  - HEADACHE [None]
  - MYALGIA [None]
  - PAIN [None]
  - SPONTANEOUS PENILE ERECTION [None]
